FAERS Safety Report 7754571-8 (Version None)
Quarter: 2011Q3

REPORT INFORMATION
  Report Type: 
  Country: None (occurrence: None)
  Receive Date: 20110915
  Receipt Date: 20060405
  Transmission Date: 20111222
  Serious: Yes (Death)
  Sender: FDA-Public Use
  Company Number: NL-BAYER-200413455GDS

PATIENT
  Age: 44 Year
  Sex: Male
  Weight: 70 kg

DRUGS (2)
  1. FLAGYL [Concomitant]
     Indication: VULVOVAGINAL MYCOTIC INFECTION
     Route: 065
  2. LEVITRA [Suspect]
     Indication: ERECTILE DYSFUNCTION
     Route: 048

REACTIONS (4)
  - DEATH [None]
  - SUDDEN DEATH [None]
  - ACUTE MYOCARDIAL INFARCTION [None]
  - MYOCARDIAL INFARCTION [None]
